FAERS Safety Report 8463917-7 (Version None)
Quarter: 2012Q2

REPORT INFORMATION
  Report Type: 
  Country: None (occurrence: None)
  Receive Date: 20120625
  Receipt Date: 20120619
  Transmission Date: 20120825
  Serious: Yes (Death, Hospitalization, Other)
  Sender: FDA-Public Use
  Company Number: CO-ELI_LILLY_AND_COMPANY-CO201206006010

PATIENT
  Age: 78 Year
  Sex: Female

DRUGS (8)
  1. CALCITRIOL [Concomitant]
  2. AMLODIPINE BESYLATE [Concomitant]
  3. CALCIUM + VITAMIN D [Concomitant]
  4. OMEPRAZOLE [Concomitant]
  5. FORTEO [Suspect]
     Dosage: UNK, UNKNOWN
     Route: 065
  6. LOSARTAN POTASSIUM [Concomitant]
  7. METOPROLOL [Concomitant]
  8. ACETAMINOPHEN W/ CODEINE [Concomitant]

REACTIONS (2)
  - PANCREATITIS [None]
  - BACTERAEMIA [None]
